FAERS Safety Report 7908476-X (Version None)
Quarter: 2011Q4

REPORT INFORMATION
  Report Type: 
  Country: None (occurrence: None)
  Receive Date: 20111110
  Receipt Date: 20111110
  Transmission Date: 20120403
  Serious: No
  Sender: FDA-Public Use
  Company Number: None

PATIENT
  Age: 58 Year
  Sex: Female

DRUGS (2)
  1. VENLAFAXINE HCL EXTENDED-RELEASE [Suspect]
     Indication: DEPRESSION
     Dosage: 75 MG;QD;PO
     Route: 048
  2. VENLAFAXINE [Suspect]
     Indication: ANXIETY
     Dosage: 75 MG; QD;PO
     Route: 048
     Dates: start: 20050101

REACTIONS (2)
  - DIZZINESS [None]
  - NAUSEA [None]
